FAERS Safety Report 8554422-8 (Version None)
Quarter: 2012Q3

REPORT INFORMATION
  Report Type: 
  Country: None (occurrence: None)
  Receive Date: 20120731
  Receipt Date: 20120723
  Transmission Date: 20120928
  Serious: Yes (Other)
  Sender: FDA-Public Use
  Company Number: US-009507513-1207USA010596

PATIENT

DRUGS (7)
  1. XANAX [Concomitant]
  2. ZOCOR [Suspect]
     Dosage: 5 MG, QD
     Route: 048
  3. ZOCOR [Suspect]
     Dosage: 10 MG,QD
     Route: 048
  4. MEDROL [Suspect]
  5. ZOCOR [Suspect]
     Dosage: 15 MG,QD
     Route: 048
  6. NORVASC [Concomitant]
     Dosage: 10 MG, QD
     Route: 048
  7. LEVAQUIN [Suspect]

REACTIONS (5)
  - DIZZINESS [None]
  - VITAMIN D DECREASED [None]
  - ARTERIOSCLEROSIS CORONARY ARTERY [None]
  - TRANSIENT ISCHAEMIC ATTACK [None]
  - JOINT SWELLING [None]
